FAERS Safety Report 19827093 (Version 1)
Quarter: 2021Q3

REPORT INFORMATION
  Report Type: Spontaneous
  Country: US (occurrence: US)
  Receive Date: 20210914
  Receipt Date: 20210914
  Transmission Date: 20211014
  Serious: No
  Sender: FDA-Public Use
  Company Number: None

PATIENT
  Age: 52 Year
  Sex: Male
  Weight: 66.15 kg

DRUGS (2)
  1. ICOSAPENT ETHYL CAPSULES 1GM [Suspect]
     Active Substance: ICOSAPENT ETHYL
     Indication: BLOOD TRIGLYCERIDES INCREASED
     Dates: start: 20210906, end: 20210907
  2. CENTRUM MULTI?VITAMIN [Concomitant]

REACTIONS (2)
  - Abdominal pain upper [None]
  - Product physical issue [None]

NARRATIVE: CASE EVENT DATE: 20210906
